FAERS Safety Report 5466948-4 (Version None)
Quarter: 2007Q3

REPORT INFORMATION
  Report Type: 
  Country: None (occurrence: None)
  Receive Date: 20070921
  Receipt Date: 20070921
  Transmission Date: 20080115
  Serious: Yes (Other)
  Sender: FDA-Public Use
  Company Number: None

PATIENT
  Age: 54 Year
  Sex: Female
  Weight: 61.2356 kg

DRUGS (1)
  1. IMITREX STATDOSE [Suspect]
     Indication: MIGRAINE
     Dosage: SUB Q INJ
     Dates: start: 20070814

REACTIONS (1)
  - DEVICE FAILURE [None]
